FAERS Safety Report 6841077-3 (Version None)
Quarter: 2010Q3

REPORT INFORMATION
  Report Type: 
  Country: None (occurrence: None)
  Receive Date: 20100714
  Receipt Date: 20070624
  Transmission Date: 20110219
  Serious: No
  Sender: FDA-Public Use
  Company Number: US-PFIZER INC-2007052136

PATIENT
  Sex: Female
  Weight: 67.3 kg

DRUGS (12)
  1. CHANTIX [Suspect]
     Indication: SMOKING CESSATION THERAPY
     Dates: start: 20070616, end: 20070624
  2. MORPHINE [Concomitant]
  3. ELMIRON [Concomitant]
  4. PREMARIN [Concomitant]
  5. TRANXENE [Concomitant]
  6. ABILIFY [Concomitant]
  7. TOPAMAX [Concomitant]
  8. ASACOL [Concomitant]
  9. ALBUTEROL [Concomitant]
     Route: 055
  10. LORAZEPAM [Concomitant]
  11. OXYBUTYNIN CHLORIDE [Concomitant]
  12. STOOL SOFTENER [Concomitant]

REACTIONS (3)
  - ABDOMINAL DISCOMFORT [None]
  - MALAISE [None]
  - VOMITING [None]
